FAERS Safety Report 6882856-6 (Version None)
Quarter: 2010Q3

REPORT INFORMATION
  Report Type: 
  Country: None (occurrence: None)
  Receive Date: 20100727
  Receipt Date: 20100720
  Transmission Date: 20110219
  Serious: Yes (Other)
  Sender: FDA-Public Use
  Company Number: US-1182073

PATIENT
  Sex: Male
  Weight: 73.9363 kg

DRUGS (6)
  1. BETOPTIC S [Suspect]
     Indication: GLAUCOMA
     Dosage: (2 OTT BID OD OPHTHALMIC)
     Route: 047
     Dates: start: 20100501, end: 20100501
  2. TRAVATAN [Suspect]
     Indication: GLAUCOMA
     Dosage: (1 GTT OU OPHTHALMIC)
  3. DORZOLAMIDE [Concomitant]
  4. THYROID [Concomitant]
  5. DHEA [Concomitant]
  6. TRAVATAN [Concomitant]

REACTIONS (9)
  - ABDOMINAL PAIN UPPER [None]
  - CARDIAC FLUTTER [None]
  - CHEST DISCOMFORT [None]
  - DEPRESSION [None]
  - DIZZINESS [None]
  - DYSPNOEA [None]
  - FATIGUE [None]
  - INSOMNIA [None]
  - MUSCULAR WEAKNESS [None]
